FAERS Safety Report 7274278-3 (Version None)
Quarter: 2011Q1

REPORT INFORMATION
  Report Type: 
  Country: None (occurrence: None)
  Receive Date: 20110204
  Receipt Date: 20110121
  Transmission Date: 20110831
  Serious: Yes (Other)
  Sender: FDA-Public Use
  Company Number: IN-RANBAXY-2010US-31142

PATIENT

DRUGS (7)
  1. LAMIVUDINE [Suspect]
     Indication: ANTIRETROVIRAL THERAPY
     Dosage: 8 MG/KG/DAY IN TWO DIVIDED DOSES
     Route: 065
  2. NEVIRAPINE [Suspect]
     Indication: ANTIRETROVIRAL THERAPY
     Dosage: 300 MG/M(SUPERSCRIPT 2)/DAY IN TWO DIVIDED DOSES
     Route: 065
  3. ZIDOVUDINE [Suspect]
     Dosage: UNK, UNK
     Route: 064
  4. ZIDOVUDINE [Suspect]
     Indication: ANTIRETROVIRAL THERAPY
     Dosage: UNK
     Route: 064
  5. ZIDOVUDINE [Suspect]
     Dosage: UNK UNK,
     Route: 048
  6. COTRIM [Concomitant]
     Indication: PROPHYLAXIS
     Route: 065
  7. ZIDOVUDINE [Suspect]
     Dosage: 360 MG/M(SUPERSCRIPT 2)/DAY IN TWO DIVIDED DOSES
     Route: 065

REACTIONS (7)
  - DRUG EXPOSURE DURING PREGNANCY [None]
  - LYMPHADENOPATHY [None]
  - MUSCLE SPASTICITY [None]
  - LACTIC ACIDOSIS [None]
  - HEPATOSPLENOMEGALY [None]
  - LYMPHADENITIS [None]
  - DEVELOPMENTAL DELAY [None]
